FAERS Safety Report 12389852 (Version 2)
Quarter: 2016Q2

REPORT INFORMATION
  Report Type: Spontaneous
  Country: US (occurrence: ES)
  Receive Date: 20160520
  Receipt Date: 20160602
  Transmission Date: 20160815
  Serious: Yes (Hospitalization)
  Sender: FDA-Public Use
  Company Number: ES-FRI-1000084706

PATIENT
  Age: 55 Year
  Sex: Male

DRUGS (4)
  1. ASENAPINE [Suspect]
     Active Substance: ASENAPINE
     Indication: BIPOLAR I DISORDER
     Dosage: 20 MG
     Route: 060
     Dates: start: 2015
  2. SINOGAN [Suspect]
     Active Substance: LEVOMEPROMAZINE
     Route: 065
  3. LYRICA [Suspect]
     Active Substance: PREGABALIN
     Route: 065
  4. CYMBALTA [Suspect]
     Active Substance: DULOXETINE HYDROCHLORIDE
     Route: 065
     Dates: end: 2016

REACTIONS (3)
  - Hyponatraemia [Unknown]
  - Inappropriate schedule of drug administration [Unknown]
  - Bronchitis [Unknown]

NARRATIVE: CASE EVENT DATE: 2015
